FAERS Safety Report 6336157-5 (Version None)
Quarter: 2009Q3

REPORT INFORMATION
  Report Type: 
  Country: None (occurrence: None)
  Receive Date: 20090831
  Receipt Date: 20090831
  Transmission Date: 20100115
  Serious: Yes (Other)
  Sender: FDA-Public Use
  Company Number: None

PATIENT
  Age: 6 Year
  Sex: Female
  Weight: 18.1439 kg

DRUGS (3)
  1. ENBREL [Suspect]
     Indication: FAMILIAL MEDITERRANEAN FEVER
     Dosage: ONE EVERY 2-3 DAY
     Dates: start: 20070601, end: 20090620
  2. CYMBALTA [Suspect]
     Indication: FAMILIAL MEDITERRANEAN FEVER
     Dosage: 20MG ONE A DAY
     Dates: start: 20080104, end: 20090625
  3. KINERET [Concomitant]

REACTIONS (1)
  - MALAISE [None]
